FAERS Safety Report 20518019 (Version 4)
Quarter: 2022Q4

REPORT INFORMATION
  Report Type: Spontaneous
  Country: PL (occurrence: PL)
  Receive Date: 20220225
  Receipt Date: 20221128
  Transmission Date: 20230112
  Serious: Yes (Other)
  Sender: FDA-Public Use
  Company Number: PL-BAUSCH-BL-2022-004356

PATIENT
  Age: 40 Year
  Sex: Female

DRUGS (8)
  1. ATORVASTATIN CALCIUM [Interacting]
     Active Substance: ATORVASTATIN CALCIUM
     Indication: Dyslipidaemia
     Dosage: 20 MG, DAILY
     Route: 065
  2. FLUCONAZOLE [Interacting]
     Active Substance: FLUCONAZOLE
     Dosage: 200 MG, DAILY
     Route: 048
  3. QUETIAPINE [Interacting]
     Active Substance: QUETIAPINE
     Indication: Depression
     Dosage: 150 MG A DAY, THEN 200 MG BEFORE SLEEP (INCREASED BY 50 MG)
     Route: 065
  4. QUETIAPINE [Interacting]
     Active Substance: QUETIAPINE
     Dosage: 150 MG A DAY, THEN 200 MG BEFORE SLEEP (INCREASED BY 50 MG)
     Route: 065
  5. CRANBERRY [Interacting]
     Active Substance: CRANBERRY
     Dosage: UNK
  6. BIOTIN [Suspect]
     Active Substance: BIOTIN
     Indication: Alopecia
     Dosage: 20 MILLIGRAM DAILY; STOPPED
     Route: 065
  7. PAROXETINE [Concomitant]
     Active Substance: PAROXETINE
     Indication: Depression
     Dosage: 20 MG, 1X/DAY
     Route: 065
  8. PAROXETINE [Concomitant]
     Active Substance: PAROXETINE
     Dosage: 40 MG, 1X/DAY
     Route: 065

REACTIONS (12)
  - Potentiating drug interaction [Recovering/Resolving]
  - Drug level increased [Unknown]
  - Dysuria [Unknown]
  - Vaginal discharge [Unknown]
  - Fatigue [Unknown]
  - Somnolence [Unknown]
  - Disturbance in attention [Unknown]
  - Anxiety [Unknown]
  - Epistaxis [Unknown]
  - Thrombocytopenia [Recovering/Resolving]
  - Leukopenia [Recovering/Resolving]
  - Hypothyroidism [Recovering/Resolving]
